FAERS Safety Report 21066378 (Version 2)
Quarter: 2022Q3

REPORT INFORMATION
  Report Type: Report from Study
  Country: CN (occurrence: CN)
  Receive Date: 20220711
  Receipt Date: 20220726
  Transmission Date: 20221026
  Serious: Yes (Hospitalization)
  Sender: FDA-Public Use
  Company Number: CN-GILEAD-2022-0588454

PATIENT
  Sex: Male

DRUGS (5)
  1. TENOFOVIR ALAFENAMIDE [Suspect]
     Active Substance: TENOFOVIR ALAFENAMIDE
     Indication: Hepatitis B
     Dosage: 1 DOSAGE FORM, QD
     Route: 048
     Dates: start: 20210713
  2. TENOFOVIR DISOPROXIL FUMARATE [Concomitant]
     Active Substance: TENOFOVIR DISOPROXIL FUMARATE
     Indication: Hepatitis B
     Dosage: 25 MG, QHS
  3. INTERFERON ALFA-1A [Concomitant]
     Active Substance: INTERFERON ALFA-1A
     Indication: Hepatitis B
  4. TELBIVUDINE [Concomitant]
     Active Substance: TELBIVUDINE
     Indication: Hepatitis B
  5. ENTECAVIR [Concomitant]
     Active Substance: ENTECAVIR
     Dosage: 1 G, QHS

REACTIONS (1)
  - Intervertebral disc protrusion [Recovered/Resolved]

NARRATIVE: CASE EVENT DATE: 20211019
